FAERS Safety Report 8508713-7 (Version None)
Quarter: 2012Q3

REPORT INFORMATION
  Report Type: 
  Country: None (occurrence: None)
  Receive Date: 20120713
  Receipt Date: 20120709
  Transmission Date: 20120928
  Serious: No
  Sender: FDA-Public Use
  Company Number: US-PFIZER INC-2012164932

PATIENT
  Age: 35 Year
  Sex: Female

DRUGS (2)
  1. ZITHROMAX [Suspect]
     Dosage: 40 MG, 1X/DAY
     Route: 048
  2. LATUDA [Suspect]
     Indication: BIPOLAR DISORDER
     Dosage: 40 MG, 1X/DAY
     Route: 048

REACTIONS (2)
  - FUNGAL INFECTION [None]
  - AKATHISIA [None]
